FAERS Safety Report 13035905 (Version 3)
Quarter: 2017Q1

REPORT INFORMATION
  Report Type: Spontaneous
  Country: DE (occurrence: DE)
  Receive Date: 20161216
  Receipt Date: 20170301
  Transmission Date: 20170428
  Serious: Yes (Hospitalization, Other)
  Sender: FDA-Public Use
  Company Number: DE-009507513-1612DEU005512

PATIENT
  Age: 41 Year
  Sex: Female
  Weight: 52 kg

DRUGS (5)
  1. TEMODAL [Suspect]
     Active Substance: TEMOZOLOMIDE
     Indication: ASTROCYTOMA
     Dosage: 3 X 100 MG/KG EVERY 4 WEEKS
     Dates: start: 2014, end: 201505
  2. EMEND [Concomitant]
     Active Substance: APREPITANT
     Indication: PROPHYLAXIS OF NAUSEA AND VOMITING
     Dosage: 80 MG, QD
  3. METOCLOPRAMIDE. [Suspect]
     Active Substance: METOCLOPRAMIDE
     Indication: PROPHYLAXIS OF NAUSEA AND VOMITING
     Dosage: 10 MG, TID
  4. TEMODAL [Suspect]
     Active Substance: TEMOZOLOMIDE
     Dosage: 140 MG, TWICE DAILY
     Dates: start: 201510, end: 20161125
  5. TEMODAL [Suspect]
     Active Substance: TEMOZOLOMIDE
     Dosage: 140 MG, ONCE DAILY
     Dates: start: 201701

REACTIONS (4)
  - Seizure [Recovered/Resolved]
  - Abdominal pain [Recovered/Resolved]
  - Skin reaction [Not Recovered/Not Resolved]
  - Malaise [Not Recovered/Not Resolved]

NARRATIVE: CASE EVENT DATE: 20161125
